FAERS Safety Report 5405411-3 (Version None)
Quarter: 2007Q3

REPORT INFORMATION
  Report Type: 
  Country: None (occurrence: None)
  Receive Date: 20070803
  Receipt Date: 20070723
  Transmission Date: 20080115
  Serious: Yes (Other)
  Sender: FDA-Public Use
  Company Number: US-PFIZER INC-2007019304

PATIENT
  Sex: Male
  Weight: 99.3 kg

DRUGS (7)
  1. CHANTIX [Suspect]
     Indication: EX-SMOKER
     Dates: start: 20070302, end: 20070310
  2. CHANTIX [Suspect]
     Indication: NICOTINE DEPENDENCE
  3. CHANTIX [Suspect]
     Indication: SMOKER
  4. AMITRIPTYLINE HCL [Concomitant]
  5. PRILOSEC [Concomitant]
  6. BENICAR [Concomitant]
  7. LIPITOR [Concomitant]

REACTIONS (5)
  - ANOREXIA [None]
  - INSOMNIA [None]
  - NERVOUSNESS [None]
  - PARAESTHESIA [None]
  - WEIGHT DECREASED [None]
